FAERS Safety Report 7203601-0 (Version None)
Quarter: 2010Q4

REPORT INFORMATION
  Report Type: 
  Country: None (occurrence: None)
  Receive Date: 20101228
  Receipt Date: 20101228
  Transmission Date: 20110411
  Serious: Yes (Hospitalization, Other)
  Sender: FDA-Public Use
  Company Number: None

PATIENT
  Age: 86 Year
  Sex: Female
  Weight: 42.6381 kg

DRUGS (1)
  1. LOVASTATIN [Suspect]
     Indication: ISCHAEMIC HEART DISEASE PROPHYLAXIS
     Dosage: 1 TABLET AT BEDTIME DAILY
     Dates: start: 20080701, end: 20101227

REACTIONS (5)
  - BLOOD SODIUM DECREASED [None]
  - HOT FLUSH [None]
  - POOR QUALITY SLEEP [None]
  - PRURITUS [None]
  - RASH [None]
